FAERS Safety Report 5600029-1 (Version None)
Quarter: 2007Q4

REPORT INFORMATION
  Report Type: 
  Country: None (occurrence: None)
  Receive Date: 20071226
  Receipt Date: 20070731
  Transmission Date: 20080405
  Serious: Yes (Death, Life-Threatening)
  Sender: FDA-Public Use
  Company Number: 2006-0010660

PATIENT
  Age: 29 Year
  Sex: Male
  Weight: 50 kg

DRUGS (8)
  1. VIREAD [Suspect]
     Indication: HIV INFECTION
     Dosage: 300 MG, 1 IN 1 D, ORAL
     Route: 048
     Dates: start: 20060601, end: 20060808
  2. KALETRA [Suspect]
     Indication: HIV INFECTION
     Dosage: 2 DOSE FORMS, 2 IN 1 D, ORAL
     Route: 048
     Dates: start: 20060426, end: 20060808
  3. SULFAMETHAXOZOLE/TRIMETHIOPRIM (BACTRIM) [Concomitant]
  4. METOPROLOL TARTRATE [Concomitant]
  5. FLAGYL [Concomitant]
  6. LEVOFLOXACIN [Concomitant]
  7. CLINDAMYCIN HCL [Concomitant]
  8. POTASSIUM CHLORIDE [Concomitant]

REACTIONS (2)
  - FANCONI SYNDROME ACQUIRED [None]
  - RENAL TUBULAR ACIDOSIS [None]
